FAERS Safety Report 12637515 (Version 1)
Quarter: 2016Q3

REPORT INFORMATION
  Report Type: Spontaneous
  Country: US (occurrence: US)
  Receive Date: 20160809
  Receipt Date: 20160809
  Transmission Date: 20161109
  Serious: Yes (Other)
  Sender: FDA-Public Use
  Company Number: US-DSJP-DSU-2016-126357

PATIENT

DRUGS (2)
  1. TRIBENZOR [Suspect]
     Active Substance: AMLODIPINE BESYLATE\HYDROCHLOROTHIAZIDE\OLMESARTAN MEDOXOMIL
     Indication: HYPERTENSION
     Dosage: 40/5/12.5MG  QD
     Route: 048
     Dates: start: 2011
  2. ATIVAN [Concomitant]
     Active Substance: LORAZEPAM
     Indication: SLEEP DISORDER
     Dosage: 1 MG, QD
     Route: 048

REACTIONS (8)
  - Hepatic cyst [Unknown]
  - Cyst [Unknown]
  - Ovarian cyst [Unknown]
  - Dyspnoea [Unknown]
  - Cholelithiasis [Unknown]
  - Anxiety [Unknown]
  - Dizziness [Unknown]
  - Abdominal distension [Unknown]

NARRATIVE: CASE EVENT DATE: 2016
